FAERS Safety Report 16862138 (Version 1)
Quarter: 2019Q4

REPORT INFORMATION
  Report Type: Spontaneous
  Country: US (occurrence: US)
  Receive Date: 20190927
  Receipt Date: 20190927
  Transmission Date: 20200122
  Serious: Yes (Hospitalization)
  Sender: FDA-Public Use
  Company Number: None

PATIENT
  Age: 64 Year
  Sex: Male

DRUGS (14)
  1. HUMIRA [Suspect]
     Active Substance: ADALIMUMAB
     Indication: RHEUMATOID ARTHRITIS
     Dosage: ?          OTHER FREQUENCY:EVERY OTHER WEEK;?
     Route: 058
  2. TAMSULOSIN [Concomitant]
     Active Substance: TAMSULOSIN
  3. HYDROCO/APAP [Concomitant]
     Active Substance: ACETAMINOPHEN\HYDROCODONE
  4. FLEXERIL [Concomitant]
     Active Substance: CYCLOBENZAPRINE HYDROCHLORIDE
  5. LEVOTHYROXINE. [Concomitant]
     Active Substance: LEVOTHYROXINE
  6. DEXTROAMPHET SACCHARAT, AMPHET ASPARTATE, DEXTROAMPHET SULFATE AND AMPHET SULFAT [Concomitant]
     Active Substance: AMPHETAMINE ASPARTATE\AMPHETAMINE SULFATE\DEXTROAMPHETAMINE SACCHARATE\DEXTROAMPHETAMINE SULFATE
  7. BUPROPION. [Concomitant]
     Active Substance: BUPROPION
  8. LAMIVUDINE. [Concomitant]
     Active Substance: LAMIVUDINE
  9. MORPHINE [Concomitant]
     Active Substance: MORPHINE
  10. PREDNISONE. [Concomitant]
     Active Substance: PREDNISONE
  11. ALTABAX [Concomitant]
     Active Substance: RETAPAMULIN
  12. CLINDAMYCIN. [Concomitant]
     Active Substance: CLINDAMYCIN
  13. TIMOLOL. [Concomitant]
     Active Substance: TIMOLOL
  14. VALTREX [Concomitant]
     Active Substance: VALACYCLOVIR HYDROCHLORIDE

REACTIONS (1)
  - Herpes zoster [None]

NARRATIVE: CASE EVENT DATE: 20190926
